FAERS Safety Report 4430544-8 (Version None)
Quarter: 2004Q3

REPORT INFORMATION
  Report Type: 
  Country: None (occurrence: None)
  Receive Date: 20040818
  Receipt Date: 20040806
  Transmission Date: 20050211
  Serious: Yes (Other)
  Sender: FDA-Public Use
  Company Number: 2004227593GB

PATIENT
  Age: 58 Year
  Sex: Female
  Weight: 63.5 kg

DRUGS (6)
  1. BEXTRA [Suspect]
     Indication: ARTHRALGIA
     Dosage: 10 MG, QD, ORAL
     Route: 048
     Dates: start: 20040721, end: 20040724
  2. ZOPICLONE [Concomitant]
  3. FEXOFENADINE HCL [Concomitant]
  4. IBUPROFEN [Concomitant]
  5. NASONEX [Concomitant]
  6. DIAZEPAM [Concomitant]

REACTIONS (3)
  - BLISTER [None]
  - HYPERSENSITIVITY [None]
  - RASH [None]
